FAERS Safety Report 14386675 (Version 2)
Quarter: 2018Q3

REPORT INFORMATION
  Report Type: Spontaneous
  Country: US (occurrence: US)
  Receive Date: 20180115
  Receipt Date: 20180919
  Transmission Date: 20181010
  Serious: Yes (Other)
  Sender: FDA-Public Use
  Company Number: US-SA-2017SA103054

PATIENT
  Age: 49 Year
  Sex: Female
  Weight: 58 kg

DRUGS (10)
  1. DOCETAXEL. [Suspect]
     Active Substance: DOCETAXEL
     Dosage: 67.5 MG/M2,QCY
     Route: 051
     Dates: start: 20140326, end: 20140326
  2. DOCETAXEL. [Suspect]
     Active Substance: DOCETAXEL
     Indication: BREAST CANCER
     Dosage: 75 MG/M2,QCY
     Route: 051
     Dates: start: 20140305, end: 20140305
  3. DOXORUBICIN [Concomitant]
     Active Substance: DOXORUBICIN
  4. DOCETAXEL. [Suspect]
     Active Substance: DOCETAXEL
     Dosage: 60 MG/M2,QCY
     Route: 051
     Dates: start: 20140625, end: 20140625
  5. DOCETAXEL. [Suspect]
     Active Substance: DOCETAXEL
     Dosage: 67.5 MG/M2,QCY
     Route: 051
     Dates: start: 20140604, end: 20140604
  6. NEOSAR [Concomitant]
     Active Substance: CYCLOPHOSPHAMIDE
  7. DOCETAXEL. [Suspect]
     Active Substance: DOCETAXEL
     Dosage: 67.5 MG/M2,QCY
     Route: 051
     Dates: start: 20140515, end: 20140515
  8. WELLBUTRIN [Concomitant]
     Active Substance: BUPROPION HYDROCHLORIDE
     Dosage: UNK UNK,UNK
     Route: 065
     Dates: start: 1984
  9. TOPAMAX [Concomitant]
     Active Substance: TOPIRAMATE
     Dosage: UNK UNK,UNK
     Route: 065
     Dates: start: 2005
  10. DOCETAXEL. [Suspect]
     Active Substance: DOCETAXEL
     Dosage: 67.5 MG/M2,QCY
     Route: 051
     Dates: start: 20140416, end: 20140416

REACTIONS (2)
  - Alopecia [Recovering/Resolving]
  - Psychological trauma [Unknown]

NARRATIVE: CASE EVENT DATE: 20141225
